FAERS Safety Report 4455324-9 (Version None)
Quarter: 2004Q3

REPORT INFORMATION
  Report Type: 
  Country: None (occurrence: None)
  Receive Date: 20040825
  Receipt Date: 20040713
  Transmission Date: 20050211
  Serious: No
  Sender: FDA-Public Use
  Company Number: 207259

PATIENT
  Age: 55 Year
  Sex: Female

DRUGS (3)
  1. RAPTIVA [Suspect]
     Indication: PSORIASIS
     Dosage: 0.7 ML,1/WEEK,SUBCUTANEOUS
     Route: 058
     Dates: start: 20040421
  2. LIDEX [Concomitant]
  3. EUCERIN (UNSCENTED MOISTURIZING FORMULA) [Concomitant]

REACTIONS (1)
  - PSORIASIS [None]
